FAERS Safety Report 9995720 (Version 1)
Quarter: 2014Q1

REPORT INFORMATION
  Report Type: Spontaneous
  Country: US (occurrence: None)
  Receive Date: 20140221
  Receipt Date: 20140221
  Transmission Date: 20141002
  Serious: No
  Sender: FDA-Public Use
  Company Number: 1000052987

PATIENT
  Sex: Male

DRUGS (1)
  1. TUDORZA PRESSAIR [Suspect]
     Dosage: 800 MCG (400 MCG, 2 IN 1 D)
     Route: 055
     Dates: start: 201311, end: 201401

REACTIONS (1)
  - Epistaxis [None]
